FAERS Safety Report 21525300 (Version 1)
Quarter: 2022Q4

REPORT INFORMATION
  Report Type: Spontaneous
  Country: US (occurrence: US)
  Receive Date: 20221030
  Receipt Date: 20221030
  Transmission Date: 20230112
  Serious: Yes (Other)
  Sender: FDA-Public Use
  Company Number: US-CTI BIOPHARMA-2022US03140

PATIENT

DRUGS (1)
  1. VONJO [Suspect]
     Active Substance: PACRITINIB
     Indication: Myelofibrosis
     Dosage: 200 MG, BID
     Route: 048
     Dates: start: 20220501

REACTIONS (3)
  - Deep vein thrombosis [Unknown]
  - Nephrolithiasis [Unknown]
  - Pain [Unknown]

NARRATIVE: CASE EVENT DATE: 20221001
